FAERS Safety Report 21367354 (Version 2)
Quarter: 2022Q4

REPORT INFORMATION
  Report Type: Spontaneous
  Country: US (occurrence: US)
  Receive Date: 20220923
  Receipt Date: 20221212
  Transmission Date: 20230113
  Serious: No
  Sender: FDA-Public Use
  Company Number: US-SA-SAC20220919001345

PATIENT
  Sex: Male

DRUGS (1)
  1. DUPIXENT [Suspect]
     Active Substance: DUPILUMAB
     Dosage: 300 MG,  FREQUENCY: OTHER
     Route: 058

REACTIONS (3)
  - Dry skin [Unknown]
  - Eye pruritus [Unknown]
  - Dry eye [Unknown]
